FAERS Safety Report 9425214 (Version 1)
Quarter: 2013Q3

REPORT INFORMATION
  Report Type: Spontaneous
  Country: IE (occurrence: IE)
  Receive Date: 20130729
  Receipt Date: 20130729
  Transmission Date: 20140515
  Serious: Yes (Other)
  Sender: FDA-Public Use
  Company Number: IE-PFIZER INC-2013214312

PATIENT
  Age: 72 Year
  Sex: Male

DRUGS (1)
  1. ECALTA [Suspect]

REACTIONS (1)
  - Cardiac failure [Unknown]
